FAERS Safety Report 22306115 (Version 2)
Quarter: 2023Q2

REPORT INFORMATION
  Report Type: Spontaneous
  Country: NL (occurrence: None)
  Receive Date: 20230511
  Receipt Date: 20230519
  Transmission Date: 20230722
  Serious: Yes (Other)
  Sender: FDA-Public Use
  Company Number: 2023A106173

PATIENT
  Sex: Female
  Weight: 103 kg

DRUGS (8)
  1. DAPAGLIFLOZIN [Suspect]
     Active Substance: DAPAGLIFLOZIN
     Indication: Diabetes mellitus
     Dosage: 1 X 1 TABLET DAILY
     Route: 048
     Dates: start: 20230125, end: 20230402
  2. ACETAMINOPHEN\TRAMADOL [Concomitant]
     Active Substance: ACETAMINOPHEN\TRAMADOL
     Dosage: 37,5/325M
  3. LINAGLIPTIN [Concomitant]
     Active Substance: LINAGLIPTIN
  4. GLICLAZIDE [Concomitant]
     Active Substance: GLICLAZIDE
  5. ENALAPRIL [Concomitant]
     Active Substance: ENALAPRIL
  6. LERCANIDIPINE [Concomitant]
     Active Substance: LERCANIDIPINE
  7. METFORMIN [Concomitant]
     Active Substance: METFORMIN HYDROCHLORIDE
  8. CELIPROLOL [Concomitant]
     Active Substance: CELIPROLOL

REACTIONS (10)
  - Haemorrhage [Recovering/Resolving]
  - Pain [Recovering/Resolving]
  - Haematuria [Recovering/Resolving]
  - Malaise [Recovering/Resolving]
  - Condition aggravated [Recovering/Resolving]
  - Decreased appetite [Recovering/Resolving]
  - Bacterial infection [Recovering/Resolving]
  - Cough [Recovering/Resolving]
  - Polyuria [Recovering/Resolving]
  - Polydipsia [Unknown]
